FAERS Safety Report 14241385 (Version 3)
Quarter: 2018Q1

REPORT INFORMATION
  Report Type: Spontaneous
  Country: IL (occurrence: IL)
  Receive Date: 20171130
  Receipt Date: 20180104
  Transmission Date: 20180508
  Serious: Yes (Other)
  Sender: FDA-Public Use
  Company Number: IL-NOVOPROD-574165

PATIENT
  Age: 45 Year
  Sex: Female
  Weight: 103 kg

DRUGS (1)
  1. SAXENDA [Suspect]
     Active Substance: LIRAGLUTIDE
     Indication: WEIGHT CONTROL
     Dosage: 0.60 MG, QD
     Route: 058

REACTIONS (2)
  - Hypoaesthesia [Recovered/Resolved]
  - Vision blurred [Recovering/Resolving]
